FAERS Safety Report 6374455-X (Version None)
Quarter: 2009Q3

REPORT INFORMATION
  Report Type: 
  Country: None (occurrence: None)
  Receive Date: 20090924
  Receipt Date: 20090917
  Transmission Date: 20100115
  Serious: Yes (Hospitalization, Other)
  Sender: FDA-Public Use
  Company Number: JP-NOVOPROD-290012

PATIENT
  Age: 68 Year
  Sex: Female
  Weight: 47 kg

DRUGS (4)
  1. INNOLET 30R CHU [Suspect]
     Indication: INSULIN-REQUIRING TYPE 2 DIABETES MELLITUS
     Dosage: 11-12 IU, QD
     Route: 058
     Dates: start: 20090522, end: 20090729
  2. CRESTOR                            /01588602/ [Suspect]
     Indication: DRUG USE FOR UNKNOWN INDICATION
     Dosage: 1 TAB, QD
     Route: 048
     Dates: start: 20070426, end: 20090718
  3. KINEDAK [Suspect]
     Indication: DRUG USE FOR UNKNOWN INDICATION
     Dosage: 3 TAB, QD
     Route: 048
     Dates: start: 20090527, end: 20090718
  4. HUMALOG [Concomitant]
     Indication: DRUG USE FOR UNKNOWN INDICATION
     Dates: start: 20090729

REACTIONS (1)
  - HEPATIC FUNCTION ABNORMAL [None]
